FAERS Safety Report 19753989 (Version 1)
Quarter: 2021Q3

REPORT INFORMATION
  Report Type: Spontaneous
  Country: FR (occurrence: FR)
  Receive Date: 20210827
  Receipt Date: 20210827
  Transmission Date: 20211014
  Serious: Yes (Hospitalization)
  Sender: FDA-Public Use
  Company Number: FR-SUN PHARMACEUTICAL INDUSTRIES LTD-2021RR-309453

PATIENT
  Age: 14 Year
  Sex: Female
  Weight: 154 kg

DRUGS (1)
  1. PARACETAMOL [Suspect]
     Active Substance: ACETAMINOPHEN
     Indication: POISONING DELIBERATE
     Dosage: INGESTION DE 6G DE DOLIPRANE.
     Route: 048
     Dates: start: 20210620, end: 20210620

REACTIONS (3)
  - Headache [Recovered/Resolved]
  - Analgesic drug level increased [Recovered/Resolved]
  - Abdominal pain upper [Recovered/Resolved]

NARRATIVE: CASE EVENT DATE: 20210620
